FAERS Safety Report 15340083 (Version 2)
Quarter: 2018Q3

REPORT INFORMATION
  Report Type: Spontaneous
  Country: US (occurrence: US)
  Receive Date: 20180831
  Receipt Date: 20180903
  Transmission Date: 20181010
  Serious: Yes (Hospitalization, Other)
  Sender: FDA-Public Use
  Company Number: US-B.I. PHARMACEUTICALS,INC./RIDGEFIELD-2018-BI-043050

PATIENT
  Sex: Male

DRUGS (3)
  1. GILOTRIF [Suspect]
     Active Substance: AFATINIB
     Indication: LUNG NEOPLASM MALIGNANT
     Dosage: FORM STRENGTH: 40 MG; FORMULATION: TABLET? ADMINISTRATION CORRECT? NR : DRUG REDUCED
     Route: 048
     Dates: end: 2018
  2. GILOTRIF [Suspect]
     Active Substance: AFATINIB
     Dosage: FORM STRENGTH: 30MG? ADMINISTRATION CORRECT? NR ;  DRUG REDUCED
     Route: 048
     Dates: start: 2018, end: 2018
  3. GILOTRIF [Suspect]
     Active Substance: AFATINIB
     Dosage: EVERY OTHER DAY;  FORM STRENGTH: 20MG? ADMINISTRATION CORRECT? YES ; DOSE NOT CHANGED
     Route: 048
     Dates: start: 2018

REACTIONS (2)
  - Cerebrovascular accident [Unknown]
  - Diarrhoea [Unknown]

NARRATIVE: CASE EVENT DATE: 2018
